FAERS Safety Report 19965411 (Version 1)
Quarter: 2021Q4

REPORT INFORMATION
  Report Type: Report from Study
  Country: US (occurrence: US)
  Receive Date: 20211018
  Receipt Date: 20211018
  Transmission Date: 20220303
  Serious: Yes (Hospitalization, Other)
  Sender: FDA-Public Use
  Company Number: US-INCYTE CORPORATION-2021IN009341

PATIENT

DRUGS (8)
  1. JAKAFI [Suspect]
     Active Substance: RUXOLITINIB
     Indication: Myelofibrosis
     Dosage: 10 MILLIGRAM, BID
     Route: 048
     Dates: start: 20210823
  2. JAKAFI [Suspect]
     Active Substance: RUXOLITINIB
     Dosage: 10 MILLIGRAM, BID
     Route: 048
     Dates: start: 20210903
  3. CARVEDILOL [Concomitant]
     Active Substance: CARVEDILOL
     Indication: Product used for unknown indication
     Dosage: 25 MILLIGRAM, BID
     Route: 065
  4. NORVASC [Concomitant]
     Active Substance: AMLODIPINE BESYLATE
     Indication: Product used for unknown indication
     Dosage: 5 MILLIGRAM, BID
     Route: 065
  5. LOSARTAN POTASSIUM [Concomitant]
     Active Substance: LOSARTAN POTASSIUM
     Indication: Product used for unknown indication
     Dosage: 100 MILLIGRAM, QD
     Route: 065
  6. DIAZEPAM [Concomitant]
     Active Substance: DIAZEPAM
     Indication: Anxiety
     Dosage: 5 MG 1HALF/1TABLET PRN
     Route: 065
  7. FIORICET [Concomitant]
     Active Substance: ACETAMINOPHEN\BUTALBITAL\CAFFEINE
     Indication: Migraine
     Dosage: 50/325/40 1 TABLET Q6H PRN
     Route: 065
  8. TYLENOL [Concomitant]
     Active Substance: ACETAMINOPHEN
     Indication: Headache
     Dosage: 325 MILLIGRAM, PRN
     Route: 065

REACTIONS (23)
  - Nausea [Recovering/Resolving]
  - Sepsis [Unknown]
  - Hallucination [Recovering/Resolving]
  - Dehydration [Recovering/Resolving]
  - Loss of consciousness [Unknown]
  - Urinary tract infection [Recovering/Resolving]
  - Vomiting [Unknown]
  - Fall [Unknown]
  - Musculoskeletal chest pain [Not Recovered/Not Resolved]
  - Arthropod sting [Unknown]
  - Stress [Unknown]
  - Blood disorder [Unknown]
  - Ill-defined disorder [Unknown]
  - Pancreatic enlargement [Unknown]
  - Splenomegaly [Unknown]
  - Hepatomegaly [Unknown]
  - Asthenia [Unknown]
  - Disorientation [Unknown]
  - Skin ulcer [Unknown]
  - Pulmonary mass [Unknown]
  - Product dose omission issue [Unknown]
  - Headache [Recovering/Resolving]
  - Contusion [Unknown]

NARRATIVE: CASE EVENT DATE: 20211013
